FAERS Safety Report 24394094 (Version 1)
Quarter: 2024Q4

REPORT INFORMATION
  Report Type: Spontaneous
  Country: BE (occurrence: BE)
  Receive Date: 20241003
  Receipt Date: 20241003
  Transmission Date: 20250115
  Serious: Yes (Death, Other)
  Sender: MERCK
  Company Number: BE-009507513-2410BEL000407

PATIENT
  Age: 54 Year
  Sex: Female

DRUGS (3)
  1. PEMBROLIZUMAB [Suspect]
     Active Substance: PEMBROLIZUMAB
     Indication: Non-small cell lung cancer stage IV
     Dosage: UNK
  2. CARBOPLATIN [Suspect]
     Active Substance: CARBOPLATIN
     Indication: Non-small cell lung cancer stage IV
     Dosage: UNK
  3. PACLITAXEL [Suspect]
     Active Substance: PACLITAXEL
     Indication: Non-small cell lung cancer stage IV
     Dosage: UNK

REACTIONS (7)
  - Malignant neoplasm progression [Fatal]
  - Immune-mediated gastritis [Not Recovered/Not Resolved]
  - Oesophageal candidiasis [Recovered/Resolved]
  - Immune-mediated pancreatitis [Unknown]
  - Autoimmune cholangitis [Unknown]
  - Hepatotoxicity [Recovered/Resolved]
  - Muscle atrophy [Unknown]
